FAERS Safety Report 6515968-7 (Version None)
Quarter: 2009Q4

REPORT INFORMATION
  Report Type: 
  Country: None (occurrence: None)
  Receive Date: 20091223
  Receipt Date: 20091221
  Transmission Date: 20100525
  Serious: Yes (Death)
  Sender: FDA-Public Use
  Company Number: US-B.I. PHARMACEUTICALS,INC./RIDGEFIELD-2009-BP-12586BP

PATIENT
  Sex: Male

DRUGS (1)
  1. MOBIC [Suspect]
     Indication: ARTHRALGIA

REACTIONS (8)
  - ASTHENIA [None]
  - DEATH [None]
  - DRUG HYPERSENSITIVITY [None]
  - GAIT DISTURBANCE [None]
  - MALAISE [None]
  - MOOD ALTERED [None]
  - PAIN [None]
  - PARALYSIS [None]
